FAERS Safety Report 8024892-2 (Version None)
Quarter: 2012Q1

REPORT INFORMATION
  Report Type: 
  Country: None (occurrence: None)
  Receive Date: 20120105
  Receipt Date: 20111229
  Transmission Date: 20120608
  Serious: Yes (Hospitalization)
  Sender: FDA-Public Use
  Company Number: PHHY2011DE57930

PATIENT
  Sex: Female

DRUGS (3)
  1. EXTAVIA [Suspect]
     Indication: MULTIPLE SCLEROSIS
     Dosage: 1 ML, QOD
     Route: 058
     Dates: start: 20110427, end: 20111116
  2. VESICARE [Concomitant]
     Indication: URINARY TRACT DISORDER
     Dosage: 5 MG, QD
     Route: 048
  3. TISSUE SALTS [Concomitant]
     Indication: MOOD ALTERED
     Dosage: UNK UKN, UNK
     Route: 048
     Dates: start: 20111001

REACTIONS (7)
  - MOOD ALTERED [None]
  - TOOTH DISORDER [None]
  - MENTAL DISORDER [None]
  - FATIGUE [None]
  - ANXIETY [None]
  - ABDOMINAL PAIN [None]
  - DIZZINESS [None]
